FAERS Safety Report 18375060 (Version 2)
Quarter: 2020Q4

REPORT INFORMATION
  Report Type: Other
  Country: JP (occurrence: JP)
  Receive Date: 20201013
  Receipt Date: 20201105
  Transmission Date: 20210114
  Serious: Yes (Death, Hospitalization)
  Sender: FDA-Public Use
  Company Number: JP-ROCHE-2669351

PATIENT
  Age: 72 Year
  Sex: Female
  Weight: 36 kg

DRUGS (7)
  1. TAKECAB [Concomitant]
     Active Substance: VONOPRAZAN FUMARATE
     Indication: CHRONIC GASTRITIS
     Dosage: DOSE INTERVAL UNCERTAINTY
     Route: 048
     Dates: start: 20190509
  2. XARELTO [Concomitant]
     Active Substance: RIVAROXABAN
     Indication: THROMBOSIS PROPHYLAXIS
     Dosage: DOSE INTERVAL UNCERTAINTY
     Route: 048
     Dates: start: 20190521
  3. ATEZOLIZUMAB. [Suspect]
     Active Substance: ATEZOLIZUMAB
     Indication: LUNG ADENOCARCINOMA
     Route: 041
     Dates: start: 20200728, end: 20200821
  4. PACLITAXEL. [Suspect]
     Active Substance: PACLITAXEL
     Indication: LUNG ADENOCARCINOMA
     Route: 041
     Dates: start: 20200728, end: 20200821
  5. BEVACIZUMAB. [Suspect]
     Active Substance: BEVACIZUMAB
     Indication: LUNG ADENOCARCINOMA
     Route: 041
     Dates: start: 20200728, end: 20200821
  6. CARBOPLATIN. [Suspect]
     Active Substance: CARBOPLATIN
     Indication: LUNG ADENOCARCINOMA
     Route: 041
     Dates: start: 20200728, end: 20200821
  7. ALFAROL [Concomitant]
     Active Substance: ALFACALCIDOL
     Dosage: DOSE INTERVAL UNCERTAINTY
     Route: 048

REACTIONS (2)
  - Hyponatraemia [Recovering/Resolving]
  - Metastases to meninges [Fatal]

NARRATIVE: CASE EVENT DATE: 20200824
